FAERS Safety Report 7604831-6 (Version None)
Quarter: 2011Q3

REPORT INFORMATION
  Report Type: 
  Country: None (occurrence: None)
  Receive Date: 20110712
  Receipt Date: 20110629
  Transmission Date: 20111222
  Serious: Yes (Other)
  Sender: FDA-Public Use
  Company Number: US-BAUSCH-2011BL004330

PATIENT
  Age: 77 Year
  Sex: Male

DRUGS (5)
  1. BESIVANCE [Suspect]
     Indication: ANTIBIOTIC PROPHYLAXIS
     Route: 047
  2. BESIVANCE [Suspect]
     Route: 047
  3. BESIVANCE [Suspect]
     Route: 047
  4. BESIVANCE [Suspect]
     Indication: OFF LABEL USE
     Route: 047
  5. LOTEMAX [Concomitant]
     Indication: PRODUCT USED FOR UNKNOWN INDICATION
     Route: 047

REACTIONS (1)
  - ENDOPHTHALMITIS [None]
